FAERS Safety Report 20533222 (Version 1)
Quarter: 2022Q1

REPORT INFORMATION
  Report Type: Report from Study
  Country: US (occurrence: US)
  Receive Date: 20220301
  Receipt Date: 20220301
  Transmission Date: 20220423
  Serious: Yes (Other)
  Sender: FDA-Public Use
  Company Number: US-OTSUKA-2021_041790

PATIENT
  Age: 40 Year
  Sex: Male

DRUGS (2)
  1. TOLVAPTAN [Suspect]
     Active Substance: TOLVAPTAN
     Indication: Congenital cystic kidney disease
     Dosage: 15 MG UPON WAKING
     Route: 048
     Dates: start: 20211115
  2. TOLVAPTAN [Suspect]
     Active Substance: TOLVAPTAN
     Dosage: 15MG 8 HOURS LATER
     Route: 048
     Dates: start: 20211115

REACTIONS (10)
  - Erectile dysfunction [Not Recovered/Not Resolved]
  - Liver injury [Unknown]
  - Hepatic cyst [Unknown]
  - Adverse drug reaction [Not Recovered/Not Resolved]
  - Sexual dysfunction [Not Recovered/Not Resolved]
  - Rash macular [Unknown]
  - Blood urine present [Unknown]
  - Insomnia [Unknown]
  - Nocturia [Unknown]
  - Underdose [Unknown]

NARRATIVE: CASE EVENT DATE: 20211129
